FAERS Safety Report 8059499-4 (Version None)
Quarter: 2012Q1

REPORT INFORMATION
  Report Type: 
  Country: None (occurrence: None)
  Receive Date: 20120119
  Receipt Date: 20120119
  Transmission Date: 20120608
  Serious: Yes (Hospitalization)
  Sender: FDA-Public Use
  Company Number: None

PATIENT
  Age: 32 Year
  Sex: Male
  Weight: 61.2356 kg

DRUGS (1)
  1. AMPICILLIN AND SULBACTAM [Suspect]
     Indication: ANTIBIOTIC PROPHYLAXIS
     Dosage: 3 GM ONCE IV
     Route: 042
     Dates: start: 20111130, end: 20111130

REACTIONS (3)
  - RESPIRATORY DEPRESSION [None]
  - BRADYCARDIA [None]
  - HYPOTENSION [None]
